FAERS Safety Report 19183901 (Version 9)
Quarter: 2021Q4

REPORT INFORMATION
  Report Type: Report from Study
  Country: CA (occurrence: CA)
  Receive Date: 20210427
  Receipt Date: 20211028
  Transmission Date: 20220303
  Serious: Yes (Hospitalization, Other)
  Sender: FDA-Public Use
  Company Number: CA-TAKEDA-2020TUS049468

PATIENT
  Age: 30 Year
  Sex: Female
  Weight: 105 kg

DRUGS (14)
  1. CUVITRU [Suspect]
     Active Substance: HUMAN IMMUNOGLOBULIN G
     Indication: Infertility
     Dosage: 18 GRAM, 1/WEEK
     Route: 058
     Dates: start: 20201105
  2. CUVITRU [Suspect]
     Active Substance: HUMAN IMMUNOGLOBULIN G
     Dosage: 18 GRAM, 1/WEEK
     Route: 058
     Dates: start: 20201105
  3. CUVITRU [Suspect]
     Active Substance: HUMAN IMMUNOGLOBULIN G
     Dosage: 18 GRAM, 1/WEEK
     Route: 065
     Dates: start: 20201105
  4. CUVITRU [Suspect]
     Active Substance: HUMAN IMMUNOGLOBULIN G
     Dosage: 13 GRAM, 2/WEEK
     Route: 065
     Dates: start: 20201105
  5. CUVITRU [Suspect]
     Active Substance: HUMAN IMMUNOGLOBULIN G
     Dosage: 26 GRAM, 1/WEEK
     Route: 065
     Dates: start: 20201105, end: 20211020
  6. FOLIC ACID [Concomitant]
     Active Substance: FOLIC ACID
     Dosage: 5 MILLIGRAM
     Route: 065
  7. VITAMIN D [Concomitant]
     Active Substance: VITAMIN D NOS
     Dosage: 2000 INTERNATIONAL UNIT
     Route: 065
  8. PANTOPRAZOLE [Concomitant]
     Active Substance: PANTOPRAZOLE
     Dosage: 40 MILLIGRAM
     Route: 065
  9. GLUMETZA [Concomitant]
     Active Substance: METFORMIN HYDROCHLORIDE
     Dosage: 1000 MILLIGRAM
     Route: 065
  10. IG GAMMA [Concomitant]
     Dosage: 1000 MILLIGRAM
     Route: 042
     Dates: start: 202002, end: 202002
  11. FERROUS SULFATE [Concomitant]
     Active Substance: FERROUS SULFATE
     Dosage: 30 MILLIGRAM, BID
     Route: 065
     Dates: start: 2021
  12. FLUOXETINE [Concomitant]
     Active Substance: FLUOXETINE HYDROCHLORIDE
     Route: 065
  13. APIXABAN [Concomitant]
     Active Substance: APIXABAN
     Dosage: 5 MILLIGRAM, BID
     Route: 065
     Dates: start: 202103, end: 20210611
  14. TINZAPARIN [Concomitant]
     Active Substance: TINZAPARIN
     Indication: Thrombosis
     Dosage: 18000 INTERNATIONAL UNIT, QD
     Route: 050
     Dates: start: 20210616

REACTIONS (17)
  - Heavy menstrual bleeding [Unknown]
  - Thrombosis [Unknown]
  - Meniscus injury [Unknown]
  - Panic attack [Recovered/Resolved]
  - Infusion site scar [Not Recovered/Not Resolved]
  - Dermatitis contact [Recovered/Resolved]
  - Injection site bruising [Not Recovered/Not Resolved]
  - Emotional disorder [Recovered/Resolved]
  - Infusion site mass [Recovered/Resolved]
  - Malaise [Recovered/Resolved]
  - Nausea [Recovered/Resolved]
  - Infusion site haemorrhage [Recovered/Resolved]
  - Impaired quality of life [Recovered/Resolved]
  - Off label use [Unknown]
  - Product administration error [Unknown]
  - Therapy interrupted [Not Recovered/Not Resolved]
  - In vitro fertilisation [Not Recovered/Not Resolved]

NARRATIVE: CASE EVENT DATE: 20200101
